FAERS Safety Report 5296336-5 (Version None)
Quarter: 2007Q2

REPORT INFORMATION
  Report Type: 
  Country: None (occurrence: None)
  Receive Date: 20070413
  Receipt Date: 20070403
  Transmission Date: 20071010
  Serious: Yes (Hospitalization)
  Sender: FDA-Public Use
  Company Number: JP-MERCK-0702USA04126

PATIENT
  Age: 72 Year
  Sex: Male
  Weight: 58 kg

DRUGS (13)
  1. STROMECTOL [Suspect]
     Indication: ACARODERMATITIS
     Route: 048
     Dates: start: 20070205, end: 20070205
  2. BERAPROST SODIUM [Concomitant]
     Indication: ARTERIOSCLEROSIS OBLITERANS
     Route: 048
     Dates: end: 20070217
  3. MIYA BM [Concomitant]
     Indication: GASTROENTERITIS
     Route: 048
     Dates: end: 20070217
  4. ASPIRIN [Concomitant]
     Indication: CEREBRAL INFARCTION
     Route: 048
     Dates: end: 20070216
  5. SODIUM CHLORIDE [Concomitant]
     Indication: HYPONATRAEMIA
     Route: 065
     Dates: end: 20070217
  6. RENIVEZE [Concomitant]
     Indication: HYPERTENSION
     Route: 048
  7. ALDACTAZIDE [Concomitant]
     Indication: HYPERTENSION
     Route: 065
  8. GASCON [Concomitant]
     Indication: GASTROENTERITIS
     Route: 048
  9. GASMOTIN [Concomitant]
     Indication: GASTROENTERITIS
     Route: 048
  10. SELBEX [Concomitant]
     Indication: GASTROENTERITIS
     Route: 048
  11. FAMOTIDINE [Concomitant]
     Indication: GASTROENTERITIS
     Route: 048
  12. LASIX [Concomitant]
     Indication: HYPERTENSION
     Route: 048
     Dates: end: 20070217
  13. GLYBURIDE [Concomitant]
     Route: 065
     Dates: end: 20070217

REACTIONS (3)
  - LIVER DISORDER [None]
  - PLATELET COUNT DECREASED [None]
  - RESPIRATORY FAILURE [None]
